FAERS Safety Report 25484776 (Version 1)
Quarter: 2025Q2

REPORT INFORMATION
  Report Type: Report from Study
  Country: US (occurrence: US)
  Receive Date: 20250626
  Receipt Date: 20250626
  Transmission Date: 20250716
  Serious: Yes (Hospitalization, Other)
  Sender: STEMLINE THERAPEUTICS
  Company Number: US-STEMLINE THERAPEUTICS, INC-2025-STML-US000942

PATIENT

DRUGS (2)
  1. ORSERDU [Suspect]
     Active Substance: ELACESTRANT
     Indication: Product used for unknown indication
     Dosage: UNK, DAILY (MG)
     Route: 065
     Dates: start: 20240111
  2. ORSERDU [Suspect]
     Active Substance: ELACESTRANT
     Dosage: UNK, DAILY (MG)
     Route: 065
     Dates: start: 20250411

REACTIONS (3)
  - Diabetes mellitus [Not Recovered/Not Resolved]
  - Costochondritis [Recovered/Resolved]
  - Constipation [Recovered/Resolved]
